FAERS Safety Report 9708565 (Version 1)
Quarter: 2013Q4

REPORT INFORMATION
  Report Type: Spontaneous
  Country: GB (occurrence: GB)
  Receive Date: 20131125
  Receipt Date: 20131125
  Transmission Date: 20140711
  Serious: Yes (Life-Threatening, Hospitalization)
  Sender: FDA-Public Use
  Company Number: GB-TEVA-444634ISR

PATIENT
  Age: 49 Year
  Sex: Male
  Weight: 75 kg

DRUGS (11)
  1. LEVETIRACETAM [Suspect]
     Indication: EPILEPSY
     Dosage: 1000 MILLIGRAM DAILY;
     Route: 048
     Dates: end: 20131031
  2. INDAPAMIDE [Suspect]
     Indication: HYPERTENSION
     Dosage: 1.5 MILLIGRAM DAILY;
     Route: 048
     Dates: end: 20131031
  3. ALLOPURINOL [Concomitant]
  4. AMLODIPINE [Concomitant]
  5. BISOPROLOL [Concomitant]
  6. OMEPRAZOLE [Concomitant]
  7. MEROPENEM [Concomitant]
  8. PROPOFOL [Concomitant]
  9. NORADRENALINE [Concomitant]
  10. VANCOMYCIN [Concomitant]
  11. FLUTICASONE FUROATE [Concomitant]

REACTIONS (15)
  - Pancreatitis [Not Recovered/Not Resolved]
  - Abdominal pain upper [Unknown]
  - Amylase increased [Unknown]
  - Somnolence [Unknown]
  - Renal failure acute [Unknown]
  - Metabolic acidosis [Unknown]
  - Pancreatic pseudocyst [Unknown]
  - Diarrhoea [Unknown]
  - Constipation [Unknown]
  - Localised intraabdominal fluid collection [Unknown]
  - Vascular pseudoaneurysm [Unknown]
  - Portal vein thrombosis [Unknown]
  - Endotracheal intubation [Unknown]
  - Mechanical ventilation [Unknown]
  - Drain placement [Unknown]
